FAERS Safety Report 16583608 (Version 1)
Quarter: 2019Q3

REPORT INFORMATION
  Report Type: Spontaneous
  Country: DE (occurrence: DE)
  Receive Date: 20190717
  Receipt Date: 20190717
  Transmission Date: 20191004
  Serious: Yes (Hospitalization)
  Sender: FDA-Public Use
  Company Number: DE-TEVA-2019-DE-1077473

PATIENT
  Age: 73 Year
  Sex: Female
  Weight: 55 kg

DRUGS (10)
  1. VIGANTOLETTEN 1000I.E. [Concomitant]
     Dosage: 1000 IE, 1-0-0-0, TABLETS
     Route: 048
  2. PREDNISOLON [Suspect]
     Active Substance: PREDNISOLONE
     Dosage: 5 MG, 1-0-0-0, TABLETS
     Route: 048
  3. IBANDRONSAURE [Concomitant]
     Dosage: 3 MG, 1MG/ML EVERY 3 MONTHS, SOLUTION FOR INJECTION/INFUSION
     Route: 042
  4. TAMOXIFEN [Concomitant]
     Active Substance: TAMOXIFEN
     Dosage: 20 MG, 1-0-0-0, TABLETS
     Route: 048
  5. FENTANYL. [Concomitant]
     Active Substance: FENTANYL
     Dosage: 50 UG/H, EVERY 3 DAYS WECHSL LAST ON 18.12.17, PATCH TRANSDERMAL
     Route: 062
  6. CALCITRAT [Concomitant]
     Dosage: 200.22 MG, 2-0-0-0, TABLETS
     Route: 048
  7. APIXABAN [Suspect]
     Active Substance: APIXABAN
     Dosage: 2.5 MG, 1-0-1-0, TABLETS
     Route: 048
  8. PANTOPRAZOL [Concomitant]
     Active Substance: PANTOPRAZOLE SODIUM
     Dosage: 40 MG, 1-0-1-0, TABLETS
     Route: 048
  9. BISOPROLOL [Concomitant]
     Active Substance: BISOPROLOL
     Dosage: 2.5 MG, 0.5-0-0-0, TABLETS
     Route: 048
  10. NATRIUMFLUORID [Concomitant]
     Dosage: 25 MG, 1-0-0-0, TABLETS
     Route: 048

REACTIONS (3)
  - Abdominal pain [Unknown]
  - Constipation [Unknown]
  - Haematochezia [Unknown]
